FAERS Safety Report 7709069-X (Version None)
Quarter: 2011Q3

REPORT INFORMATION
  Report Type: 
  Country: None (occurrence: None)
  Receive Date: 20110825
  Receipt Date: 20110817
  Transmission Date: 20111222
  Serious: Yes (Death, Hospitalization, Other)
  Sender: FDA-Public Use
  Company Number: JP-JNJFOC-20100404949

PATIENT
  Sex: Female
  Weight: 43 kg

DRUGS (14)
  1. DOXORUBICIN HCL [Suspect]
     Indication: OVARIAN CANCER RECURRENT
     Dosage: CYCLE 1
     Route: 042
     Dates: start: 20091126, end: 20091126
  2. CELECOXIB [Concomitant]
     Route: 048
     Dates: start: 20091226, end: 20091229
  3. SELBEX [Concomitant]
     Indication: PROPHYLAXIS
     Route: 048
     Dates: start: 20100122, end: 20100222
  4. FENTANYL [Concomitant]
     Route: 042
     Dates: start: 20091202, end: 20091215
  5. FENTANYL [Concomitant]
     Route: 062
     Dates: start: 20091214, end: 20091224
  6. DOXORUBICIN HCL [Suspect]
     Dosage: CYCLE 3
     Route: 042
     Dates: start: 20100123, end: 20100123
  7. ACETAMINOPHEN [Concomitant]
     Route: 048
     Dates: start: 20091213, end: 20091229
  8. MAGNESIUM OXIDE [Concomitant]
     Indication: PROPHYLAXIS
     Route: 048
     Dates: start: 20091209, end: 20100222
  9. DOXORUBICIN HCL [Suspect]
     Dosage: CYCLE 4
     Route: 042
     Dates: start: 20100225, end: 20100225
  10. ALOSENN [Concomitant]
     Indication: PROPHYLAXIS
     Route: 048
     Dates: start: 20091126, end: 20091201
  11. DOXORUBICIN HCL [Suspect]
     Dosage: CYCLE 2
     Route: 042
     Dates: start: 20091226, end: 20091226
  12. VOLTAREN [Concomitant]
     Indication: OVARIAN CANCER RECURRENT
     Route: 048
     Dates: start: 20100122, end: 20100222
  13. MORPHINE [Concomitant]
     Route: 048
     Dates: start: 20091215, end: 20091229
  14. PROCHLORPERAZINE [Concomitant]
     Indication: PROPHYLAXIS
     Route: 048
     Dates: start: 20091202, end: 20091229

REACTIONS (3)
  - INTESTINAL OBSTRUCTION [None]
  - OVARIAN CANCER [None]
  - WHITE BLOOD CELL COUNT DECREASED [None]
